FAERS Safety Report 5802423-2 (Version None)
Quarter: 2008Q3

REPORT INFORMATION
  Report Type: 
  Country: None (occurrence: None)
  Receive Date: 20080707
  Receipt Date: 20080617
  Transmission Date: 20090109
  Serious: Yes (Other)
  Sender: FDA-Public Use
  Company Number: GB-ALLERGAN-0805446US

PATIENT
  Sex: Male

DRUGS (1)
  1. LUMIGAN [Suspect]
     Indication: DRUG USE FOR UNKNOWN INDICATION
     Dosage: UNK, UNK
     Dates: start: 20071201

REACTIONS (5)
  - DIZZINESS [None]
  - DRY MOUTH [None]
  - FOREIGN BODY SENSATION IN EYES [None]
  - PROSTATIC SPECIFIC ANTIGEN INCREASED [None]
  - SKIN WARM [None]
